FAERS Safety Report 13793074 (Version 1)
Quarter: 2017Q3

REPORT INFORMATION
  Report Type: Spontaneous
  Country: US (occurrence: US)
  Receive Date: 20170726
  Receipt Date: 20170726
  Transmission Date: 20171127
  Serious: Yes (Other)
  Sender: FDA-Public Use
  Company Number: None

PATIENT
  Age: 90 Year
  Sex: Female
  Weight: 58.05 kg

DRUGS (6)
  1. AZOPT [Concomitant]
     Active Substance: BRINZOLAMIDE
  2. REFRESH [Concomitant]
     Active Substance: UNSPECIFIED INGREDIENT
  3. LISINOPRIL. [Suspect]
     Active Substance: LISINOPRIL
     Indication: HYPERTENSION
     Dosage: ?          QUANTITY:1 TABLET(S);?
     Route: 048
     Dates: start: 20170718, end: 20170721
  4. BABY ASPIRIN MURO 128 [Concomitant]
  5. LATANOPROST. [Concomitant]
     Active Substance: LATANOPROST
  6. LOSARTAN. [Concomitant]
     Active Substance: LOSARTAN

REACTIONS (2)
  - Cough [None]
  - Somnolence [None]

NARRATIVE: CASE EVENT DATE: 20170720
